FAERS Safety Report 9723787 (Version 1)
Quarter: 2013Q4

REPORT INFORMATION
  Report Type: Spontaneous
  Country: US (occurrence: US)
  Receive Date: 20131202
  Receipt Date: 20131202
  Transmission Date: 20140711
  Serious: Yes (Hospitalization, Other)
  Sender: FDA-Public Use
  Company Number: US-TEVA-447513USA

PATIENT
  Age: 28 Year
  Sex: Male

DRUGS (4)
  1. METHOTREXATE [Suspect]
     Indication: CROHN^S DISEASE
     Dosage: LOW DOSE
     Route: 065
  2. ADALIMUMAB [Concomitant]
     Indication: CROHN^S DISEASE
  3. INFLIXIMAB [Concomitant]
     Indication: CROHN^S DISEASE
  4. USTEKINUMAB [Concomitant]
     Indication: CROHN^S DISEASE

REACTIONS (1)
  - Hypersensitivity vasculitis [Recovering/Resolving]
